FAERS Safety Report 15364778 (Version 3)
Quarter: 2018Q4

REPORT INFORMATION
  Report Type: Spontaneous
  Country: GB (occurrence: GB)
  Receive Date: 20180910
  Receipt Date: 20181107
  Transmission Date: 20190204
  Serious: Yes (Other)
  Sender: FDA-Public Use
  Company Number: GB-BIOGEN-2018BI00603016

PATIENT
  Age: 40 Year
  Sex: Female

DRUGS (7)
  1. TRIMIPRAMINE [Concomitant]
     Active Substance: TRIMIPRAMINE
     Indication: PRODUCT USED FOR UNKNOWN INDICATION
     Dosage: 2 CAPSULES TO BE TAKEN AT NIGHT
     Route: 065
  2. LOPERAMIDE HYDROCHLORIDE. [Concomitant]
     Active Substance: LOPERAMIDE HYDROCHLORIDE
     Indication: PRODUCT USED FOR UNKNOWN INDICATION
     Dosage: ONE CAPSULE TO BE TAKEN AFTER EACH LOOSE BOWEL MOVEMENT
     Route: 065
  3. GABAPENTIN. [Concomitant]
     Active Substance: GABAPENTIN
     Indication: PRODUCT USED FOR UNKNOWN INDICATION
     Route: 065
  4. TYSABRI [Suspect]
     Active Substance: NATALIZUMAB
     Indication: PRODUCT USED FOR UNKNOWN INDICATION
     Dosage: INFUSED FOR OVER 1 HOUR
     Route: 065
     Dates: end: 20180604
  5. TYSABRI [Suspect]
     Active Substance: NATALIZUMAB
     Route: 065
     Dates: start: 201103
  6. TYSABRI [Suspect]
     Active Substance: NATALIZUMAB
     Route: 065
     Dates: end: 20180604
  7. COCODAMOL [Concomitant]
     Active Substance: ACETAMINOPHEN\CODEINE PHOSPHATE
     Indication: PRODUCT USED FOR UNKNOWN INDICATION
     Dosage: 30/500; 2 TABLETS UP TO 4X DAILY
     Route: 048

REACTIONS (9)
  - Vulvar dysplasia [Unknown]
  - Vulval disorder [Recovered/Resolved]
  - Depression [Unknown]
  - Urinary tract infection staphylococcal [Unknown]
  - Lower respiratory tract infection [Unknown]
  - Vulvovaginitis staphylococcal [Unknown]
  - Vulvovaginal candidiasis [Unknown]
  - Lichen sclerosus [Recovered/Resolved]
  - Immunosuppression [Unknown]

NARRATIVE: CASE EVENT DATE: 2013
